FAERS Safety Report 7797342-9 (Version None)
Quarter: 2011Q4

REPORT INFORMATION
  Report Type: 
  Country: None (occurrence: None)
  Receive Date: 20111005
  Receipt Date: 20110923
  Transmission Date: 20120403
  Serious: No
  Sender: FDA-Public Use
  Company Number: US-B.I. PHARMACEUTICALS,INC./RIDGEFIELD-2011-BP-22811BP

PATIENT
  Age: 80 Year
  Sex: Male

DRUGS (15)
  1. PRADAXA [Suspect]
     Indication: ATRIAL FIBRILLATION
     Dosage: 300 MG
     Route: 048
  2. TIKOSYN [Concomitant]
     Indication: ATRIAL FIBRILLATION
     Route: 048
  3. LISINOPRIL [Concomitant]
     Indication: HYPERTENSION
     Dosage: 40 MG
     Route: 048
  4. FUROSEMIDE [Concomitant]
     Indication: CARDIAC FAILURE
     Dosage: 80 MG
     Route: 048
  5. CRESTOR [Concomitant]
     Indication: BLOOD CHOLESTEROL INCREASED
     Dosage: 10 MG
     Route: 048
  6. NEXIUM [Concomitant]
     Indication: GASTROOESOPHAGEAL REFLUX DISEASE
     Dosage: 12.5 MG
     Route: 048
  7. TYLENOL-500 [Concomitant]
     Indication: ARTHRALGIA
     Route: 048
  8. ASPIRIN [Concomitant]
     Indication: ATRIAL FIBRILLATION
     Route: 048
  9. ZOLPIDEM [Concomitant]
     Indication: INSOMNIA
     Dosage: 10 MG
     Route: 048
  10. COQ10 [Concomitant]
     Indication: SUPPLEMENTATION THERAPY
     Route: 048
  11. POTASSIUM [Concomitant]
     Indication: SUPPLEMENTATION THERAPY
     Dosage: 10 MEQ
     Route: 048
  12. LEVOTHYROXINE [Concomitant]
     Indication: HYPOTHYROIDISM
     Dosage: 175 MCG
     Route: 048
  13. CARVEDILOL [Concomitant]
     Indication: CARDIAC FAILURE
     Dosage: 12.5 MG
     Route: 048
  14. AVODART [Concomitant]
     Indication: BENIGN PROSTATIC HYPERPLASIA
     Dosage: 0.5 MG
     Route: 048
  15. INSPRA [Concomitant]
     Indication: CARDIAC FAILURE
     Dosage: 12.5 MG
     Route: 048

REACTIONS (3)
  - ERUCTATION [None]
  - FLATULENCE [None]
  - PULMONARY CONGESTION [None]
